FAERS Safety Report 7813875-0 (Version None)
Quarter: 2011Q4

REPORT INFORMATION
  Report Type: 
  Country: None (occurrence: None)
  Receive Date: 20111014
  Receipt Date: 20110930
  Transmission Date: 20120403
  Serious: Yes (Other)
  Sender: FDA-Public Use
  Company Number: US-JNJFOC-20111002897

PATIENT
  Sex: Male

DRUGS (4)
  1. VISINE L.R. [Suspect]
     Route: 047
  2. VISINE L.R. [Suspect]
     Indication: PRODUCT USED FOR UNKNOWN INDICATION
     Route: 047
  3. LISINOPRIL [Concomitant]
     Dosage: ONE 40 MG
     Route: 065
  4. LISINOPRIL [Concomitant]
     Indication: HYPERTENSION
     Route: 065

REACTIONS (5)
  - PAIN [None]
  - INSOMNIA [None]
  - EYE DISORDER [None]
  - CORNEAL OEDEMA [None]
  - PRODUCT QUALITY ISSUE [None]
